FAERS Safety Report 5582119-5 (Version None)
Quarter: 2007Q4

REPORT INFORMATION
  Report Type: 
  Country: None (occurrence: None)
  Receive Date: 20071130
  Receipt Date: 20070814
  Transmission Date: 20080405
  Serious: No
  Sender: FDA-Public Use
  Company Number: US200708003104

PATIENT
  Age: 70 Year
  Sex: Male
  Weight: 102 kg

DRUGS (5)
  1. BYETTA [Suspect]
     Indication: TYPE 1 DIABETES MELLITUS
     Dosage: 5 UG, 2/D, 10 UG, 2/D, 20 UG, OTHER, SUBCUTANEOUS
     Route: 058
     Dates: start: 20070813, end: 20070813
  2. BYETTA [Suspect]
     Indication: TYPE 1 DIABETES MELLITUS
     Dosage: 5 UG, 2/D, 10 UG, 2/D, 20 UG, OTHER, SUBCUTANEOUS
     Route: 058
     Dates: start: 20070601
  3. GLYBURIDE [Concomitant]
  4. HUMULIN R [Concomitant]
  5. LISINOPRIL [Concomitant]

REACTIONS (6)
  - BLOOD GLUCOSE DECREASED [None]
  - BLOOD GLUCOSE INCREASED [None]
  - COLD SWEAT [None]
  - DRUG INEFFECTIVE [None]
  - GLYCOSYLATED HAEMOGLOBIN INCREASED [None]
  - INTENTIONAL OVERDOSE [None]
